FAERS Safety Report 10297366 (Version 5)
Quarter: 2015Q3

REPORT INFORMATION
  Report Type: Spontaneous
  Country: DK (occurrence: DK)
  Receive Date: 20140711
  Receipt Date: 20150805
  Transmission Date: 20151125
  Serious: Yes (Death, Hospitalization, Other)
  Sender: FDA-Public Use
  Company Number: PHHY2014DK083551

PATIENT
  Age: 60 Year
  Sex: Female

DRUGS (8)
  1. MYCOPHENOLIC ACID. [Suspect]
     Active Substance: MYCOPHENOLIC ACID
     Indication: IMMUNOSUPPRESSION
  2. MUROMONAB-CD3 [Concomitant]
     Active Substance: MUROMONAB-CD3
  3. AZATHIOPRINE. [Suspect]
     Active Substance: AZATHIOPRINE
     Indication: IMMUNOSUPPRESSION
  4. TACROLIMUS. [Suspect]
     Active Substance: TACROLIMUS
     Indication: IMMUNOSUPPRESSION
     Dosage: UNK
  5. TACROLIMUS. [Suspect]
     Active Substance: TACROLIMUS
     Dosage: UNK
  6. METHYLPREDNISOLONE. [Suspect]
     Active Substance: METHYLPREDNISOLONE
     Indication: IMMUNOSUPPRESSION
  7. IMMUNOGLOBULINS [Concomitant]
     Active Substance: HUMAN IMMUNOGLOBULIN G
  8. CICLOSPORIN [Suspect]
     Active Substance: CYCLOSPORINE
     Indication: IMMUNOSUPPRESSION
     Dosage: UNK

REACTIONS (15)
  - Partial seizures [Fatal]
  - Hemiparesis [Fatal]
  - Somnolence [Fatal]
  - Progressive multifocal leukoencephalopathy [Fatal]
  - Paralysis [Fatal]
  - Nervous system disorder [Fatal]
  - Brain injury [Fatal]
  - Drug ineffective [Unknown]
  - Polyomavirus test positive [Fatal]
  - Aphasia [Fatal]
  - Neurodegenerative disorder [Fatal]
  - Transplant rejection [Unknown]
  - Cognitive disorder [Fatal]
  - Azotaemia [Unknown]
  - Glomerular filtration rate decreased [Unknown]

NARRATIVE: CASE EVENT DATE: 199310
